FAERS Safety Report 8814284 (Version 1)
Quarter: 2012Q4

REPORT INFORMATION
  Report Type: 
  Country: US (occurrence: US)
  Receive Date: 20120928
  Receipt Date: 20120928
  Transmission Date: 20130627
  Serious: Yes (Hospitalization, Other)
  Sender: FDA-Public Use
  Company Number: US-JNJFOC-20120909059

PATIENT
  Sex: Female

DRUGS (16)
  1. TOPAMAX [Suspect]
     Indication: CONVULSION
     Route: 048
     Dates: start: 2012
  2. TOPAMAX [Suspect]
     Indication: CONVULSION
     Dosage: 25mg, 2 at am and 2 at pm
     Route: 048
     Dates: start: 1996, end: 2012
  3. TOPIRAMATE [Suspect]
     Indication: CONVULSION
     Dosage: 25mg, 2 at am and 2 at pm
     Route: 048
     Dates: start: 2012, end: 2012
  4. SYNTHROID [Suspect]
     Indication: THYROID DISORDER
     Route: 048
     Dates: start: 2010
  5. SYNTHROID [Suspect]
     Indication: THYROID DISORDER
     Route: 048
     Dates: start: 2011, end: 2011
  6. SYNTHROID [Suspect]
     Indication: THYROID DISORDER
     Dosage: on an unspecified date in 2011
     Route: 048
     Dates: start: 2011, end: 2011
  7. SYNTHROID [Suspect]
     Indication: THYROID DISORDER
     Dosage: on an unspecified date in 2011
     Route: 048
     Dates: start: 2011, end: 2011
  8. SYNTHROID [Suspect]
     Indication: THYROID DISORDER
     Dosage: on an unspecified date in 2011
     Route: 048
     Dates: start: 2011
  9. PROVIGIL [Suspect]
     Indication: FATIGUE
     Route: 048
  10. PROVIGIL [Suspect]
     Indication: ASTHENIA
     Route: 048
  11. BENICAR [Concomitant]
     Indication: BLOOD PRESSURE
     Dosage: 20-12.5mg 1 in am and 1 in pm
     Route: 048
  12. FOLBIC [Concomitant]
     Indication: CEREBROVASCULAR ACCIDENT
     Dosage: 1 in pm
     Route: 048
  13. LAMOTRIGINE [Concomitant]
     Indication: CEREBROVASCULAR ACCIDENT
     Dosage: 1 in am and 1 in pm
     Route: 048
  14. LAMOTRIGINE [Concomitant]
     Indication: CEREBROVASCULAR ACCIDENT
     Dosage: 1 in am and 1 in pm
     Route: 048
  15. PLAVIX [Concomitant]
     Indication: ANTICOAGULANT THERAPY
     Dosage: 1 in pm
     Route: 048
  16. ASPIRIN [Concomitant]
     Indication: CEREBROVASCULAR ACCIDENT
     Dosage: 1 in pm
     Route: 048

REACTIONS (13)
  - Cerebrovascular accident [Recovered/Resolved]
  - Dyspnoea [Unknown]
  - Chest pain [Unknown]
  - Thyroid disorder [Not Recovered/Not Resolved]
  - Tremor [Recovered/Resolved]
  - Cardiac disorder [Recovered/Resolved]
  - Asthenia [Not Recovered/Not Resolved]
  - Fatigue [Not Recovered/Not Resolved]
  - Visual acuity reduced [Not Recovered/Not Resolved]
  - Pain [Not Recovered/Not Resolved]
  - Feeling abnormal [Recovered/Resolved]
  - Heart rate increased [Recovered/Resolved]
  - Weight increased [Unknown]
